FAERS Safety Report 24552595 (Version 2)
Quarter: 2024Q4

REPORT INFORMATION
  Report Type: Spontaneous
  Country: US (occurrence: US)
  Receive Date: 20241026
  Receipt Date: 20241122
  Transmission Date: 20250115
  Serious: Yes (Other)
  Sender: AMGEN
  Company Number: US-AMGEN-USASP2024208253

PATIENT
  Age: 47 Year
  Sex: Male
  Weight: 142.86 kg

DRUGS (26)
  1. TEPEZZA [Suspect]
     Active Substance: TEPROTUMUMAB-TRBW
     Indication: Product used for unknown indication
     Dosage: 1420 MILLIGRAM, Q3WK
     Route: 040
     Dates: start: 20220608, end: 20220608
  2. TEPEZZA [Suspect]
     Active Substance: TEPROTUMUMAB-TRBW
     Dosage: 2850 MILLIGRAM, Q3WK (SECOND INFUSION)
     Route: 040
     Dates: start: 20220628, end: 20220628
  3. TEPEZZA [Suspect]
     Active Substance: TEPROTUMUMAB-TRBW
     Dosage: 2850 MILLIGRAM, Q3WK (THIRD INFUSION)
     Route: 040
     Dates: start: 20220720, end: 20220720
  4. TEPEZZA [Suspect]
     Active Substance: TEPROTUMUMAB-TRBW
     Dosage: 2850 MILLIGRAM, Q3WK
     Route: 040
     Dates: start: 20220811, end: 20220811
  5. TEPEZZA [Suspect]
     Active Substance: TEPROTUMUMAB-TRBW
     Dosage: 2850 MILLIGRAM, Q3WK
     Route: 040
     Dates: start: 20220901, end: 20220901
  6. TEPEZZA [Suspect]
     Active Substance: TEPROTUMUMAB-TRBW
     Dosage: 2850 MILLIGRAM, Q3WK
     Route: 040
     Dates: start: 20220922, end: 20220922
  7. TEPEZZA [Suspect]
     Active Substance: TEPROTUMUMAB-TRBW
     Dosage: 2850 MILLIGRAM, Q3WK
     Route: 040
     Dates: start: 20221013, end: 20221013
  8. TEPEZZA [Suspect]
     Active Substance: TEPROTUMUMAB-TRBW
     Dosage: 2850 MILLIGRAM, Q3WK
     Route: 040
     Dates: start: 20221103, end: 20221103
  9. PEPCID [Concomitant]
     Active Substance: FAMOTIDINE
     Dosage: 20 MILLIGRAM, QD
     Route: 048
  10. ADVIL [Concomitant]
     Active Substance: IBUPROFEN
     Indication: Pain
     Dosage: 200 MILLIGRAM, Q6H
     Route: 048
  11. TAPAZOLE [Concomitant]
     Active Substance: METHIMAZOLE
     Indication: Graves^ disease
     Dosage: 5 MILLIGRAM, QD
     Dates: start: 202110
  12. TAPAZOLE [Concomitant]
     Active Substance: METHIMAZOLE
     Dosage: 10 MILLIGRAM, TID
     Dates: start: 202111
  13. TAPAZOLE [Concomitant]
     Active Substance: METHIMAZOLE
     Dosage: 20 MILLIGRAM, TID
     Dates: start: 202112
  14. TAPAZOLE [Concomitant]
     Active Substance: METHIMAZOLE
     Dosage: 10 MILLIGRAM, TID
     Dates: start: 20220125, end: 20220127
  15. TAPAZOLE [Concomitant]
     Active Substance: METHIMAZOLE
     Dosage: 2.5 MILLIGRAM, QD (5 MG TABLET TAKE ONE HALF TABLET)
     Route: 048
     Dates: start: 20230605
  16. TAPAZOLE [Concomitant]
     Active Substance: METHIMAZOLE
     Dosage: 5 MILLIGRAM, QD
     Route: 048
     Dates: start: 20240327
  17. OZEMPIC [Concomitant]
     Active Substance: SEMAGLUTIDE
     Dosage: UNK UNK, QWK 0.25 MG OR 0.5 MG (2 MG/3 ML) PEN INJECTOR INJECT ONE QUARTER MG INTO THE SKIN EVERY 7
     Dates: start: 20230626
  18. VIAGRA [Concomitant]
     Active Substance: SILDENAFIL CITRATE
     Indication: Erectile dysfunction
     Dosage: 50 MILLIGRAM, QD AS NEEDED
     Route: 048
     Dates: start: 20210917, end: 20230703
  19. LIPITOR [Concomitant]
     Active Substance: ATORVASTATIN CALCIUM
     Dosage: 10 MILLIGRAM NIGHTLY
     Route: 048
     Dates: start: 20240327
  20. PROTONIX [Concomitant]
     Active Substance: PANTOPRAZOLE SODIUM
     Dosage: 40 MILLIGRAM EVERY MORNING
     Route: 048
     Dates: start: 20240701
  21. SODIUM CHLORIDE [Concomitant]
     Active Substance: SODIUM CHLORIDE
     Dosage: 100 MILLILITER
     Dates: start: 20220608
  22. SODIUM CHLORIDE [Concomitant]
     Active Substance: SODIUM CHLORIDE
     Dosage: 250 MILLILITER
     Dates: start: 20220628
  23. HEPARIN [Concomitant]
     Active Substance: HEPARIN SODIUM
  24. MOUNJARO [Concomitant]
     Active Substance: TIRZEPATIDE
     Dosage: 2.5 MILLIGRAM, QWK (2.5 MG/0.5 ML INJECTION INJECT 0.5 MLS (2.5 MG TOTAL) INTO THE SKIN EVERY 7 DAYS
     Dates: start: 20230605, end: 20230608
  25. SAXENDA [Concomitant]
     Active Substance: LIRAGLUTIDE
     Dosage: 3 MILLIGRAM, QD (3 MG/0.5 ML (18 MG/3 ML) SUBCUTANEOUS PEN INJECT 0.5 MLS (3 MG TOTAL) INTO THE SKIN
     Route: 058
  26. AMOXIL [Concomitant]
     Active Substance: AMOXICILLIN
     Dosage: 500 MILLIGRAM

REACTIONS (11)
  - Deafness neurosensory [Not Recovered/Not Resolved]
  - Pain [Unknown]
  - Anxiety [Unknown]
  - Emotional distress [Unknown]
  - Product use complaint [Unknown]
  - Blood pressure abnormal [Unknown]
  - Diarrhoea [Recovered/Resolved]
  - Weight decreased [Unknown]
  - Fatigue [Unknown]
  - Leukoplakia [Unknown]
  - Blood thyroid stimulating hormone increased [Unknown]

NARRATIVE: CASE EVENT DATE: 20220101
